FAERS Safety Report 8835089 (Version 2)
Quarter: 2012Q4

REPORT INFORMATION
  Report Type: Report from Study
  Country: IT (occurrence: IT)
  Receive Date: 20121010
  Receipt Date: 20121016
  Transmission Date: 20130627
  Serious: Yes (Hospitalization)
  Sender: FDA-Public Use
  Company Number: IT-ROCHE-1142253

PATIENT
  Age: 67 Year
  Sex: Female
  Weight: 68 kg

DRUGS (4)
  1. BEVACIZUMAB [Suspect]
     Indication: COLORECTAL CANCER METASTATIC
     Dosage: stop date :19/Oct/2011
     Route: 042
     Dates: start: 20111019
  2. FLUOROURACIL [Concomitant]
     Route: 040
     Dates: start: 20111017, end: 20111017
  3. FLUOROURACIL [Concomitant]
     Route: 041
     Dates: start: 20111017, end: 20111018
  4. IRINOTECAN [Concomitant]
     Route: 065
     Dates: start: 20111017, end: 20111017

REACTIONS (1)
  - Acute coronary syndrome [Recovered/Resolved]
